FAERS Safety Report 9691794 (Version 2)
Quarter: 2013Q4

REPORT INFORMATION
  Report Type: Spontaneous
  Country: US (occurrence: US)
  Receive Date: 20131115
  Receipt Date: 20131115
  Transmission Date: 20140711
  Serious: No
  Sender: FDA-Public Use
  Company Number: US-ASTRAZENECA-2012SE27230

PATIENT
  Age: 65 Year
  Sex: Female
  Weight: 70.3 kg

DRUGS (10)
  1. PRILOSEC [Suspect]
     Route: 048
  2. NEXIUM [Suspect]
     Indication: GASTROOESOPHAGEAL REFLUX DISEASE
     Route: 048
     Dates: start: 2008, end: 20131025
  3. TEGRETOL XR [Concomitant]
     Indication: CONVULSION
     Route: 048
     Dates: start: 2004
  4. ADVAIR [Concomitant]
     Dosage: 100/50MG BID
     Route: 048
     Dates: start: 2009
  5. SYNTHROID [Concomitant]
     Indication: THYROID DISORDER
     Dosage: 100MCG DAILY
     Route: 048
     Dates: start: 2008
  6. CA WITH D [Concomitant]
     Indication: BONE DISORDER
     Route: 048
     Dates: start: 2005
  7. FISH OIL [Concomitant]
     Indication: EYE DISORDER
     Route: 048
     Dates: start: 2009
  8. ACUVIT [Concomitant]
     Indication: EYE DISORDER
     Dosage: 1 CAP DAILY
     Route: 048
     Dates: start: 2011
  9. ALEVE [Concomitant]
     Indication: ARTHRITIS
     Dosage: 2 TABS PRN
     Route: 048
  10. ALPRAZOLAM [Concomitant]
     Indication: NERVOUSNESS
     Route: 048
     Dates: start: 2009

REACTIONS (12)
  - Gastrooesophageal reflux disease [Unknown]
  - Oropharyngeal pain [Not Recovered/Not Resolved]
  - Hiccups [Not Recovered/Not Resolved]
  - Cough [Not Recovered/Not Resolved]
  - Increased upper airway secretion [Not Recovered/Not Resolved]
  - Eating disorder [Not Recovered/Not Resolved]
  - Dyspepsia [Not Recovered/Not Resolved]
  - Dyspnoea [Not Recovered/Not Resolved]
  - Weight decreased [Not Recovered/Not Resolved]
  - Inappropriate schedule of drug administration [Unknown]
  - Drug dose omission [Not Recovered/Not Resolved]
  - Drug ineffective [Unknown]
